FAERS Safety Report 4510708-5 (Version None)
Quarter: 2004Q4

REPORT INFORMATION
  Report Type: 
  Country: None (occurrence: None)
  Receive Date: 20041122
  Receipt Date: 20041109
  Transmission Date: 20050328
  Serious: Yes (Life-Threatening, Hospitalization)
  Sender: FDA-Public Use
  Company Number: 2004088289

PATIENT
  Age: 24 Year
  Sex: Female

DRUGS (1)
  1. ZOLOFT [Suspect]
     Indication: DEPRESSION
     Dosage: 200 MG (200 MG, 1 IN 1 D), ORAL
     Route: 048
     Dates: start: 20040101, end: 20040801

REACTIONS (8)
  - BLOOD SODIUM DECREASED [None]
  - CONFUSIONAL STATE [None]
  - CONVULSION [None]
  - DIARRHOEA [None]
  - HEPATIC ENZYME INCREASED [None]
  - HYPERTHERMIA [None]
  - HYPERTONIA [None]
  - RESPIRATORY DISORDER [None]
